FAERS Safety Report 10751444 (Version 1)
Quarter: 2015Q1

REPORT INFORMATION
  Report Type: Spontaneous
  Country: US (occurrence: None)
  Receive Date: 20150129
  Receipt Date: 20150129
  Transmission Date: 20150721
  Serious: Yes (Other)
  Sender: FDA-Public Use
  Company Number: None

PATIENT
  Age: 57 Year
  Sex: Female

DRUGS (2)
  1. ENBREL [Suspect]
     Active Substance: ETANERCEPT
     Dates: start: 200802, end: 201210
  2. HUMIRA [Suspect]
     Active Substance: ADALIMUMAB
     Indication: PSORIASIS
     Dosage: SQ
     Dates: start: 201210, end: 201310

REACTIONS (1)
  - Extranodal marginal zone B-cell lymphoma (MALT type) [None]

NARRATIVE: CASE EVENT DATE: 20131105
